FAERS Safety Report 8496706-8 (Version None)
Quarter: 2012Q3

REPORT INFORMATION
  Report Type: 
  Country: None (occurrence: None)
  Receive Date: 20120709
  Receipt Date: 20120705
  Transmission Date: 20120928
  Serious: Yes (Congenital Anomaly, Other)
  Sender: FDA-Public Use
  Company Number: US-BAXTER-2011BH031579

PATIENT
  Sex: Female

DRUGS (7)
  1. DEXAMETHASONE [Suspect]
     Indication: INFERTILITY
     Route: 065
  2. HUMIRA [Suspect]
     Indication: INFERTILITY
     Route: 065
  3. KIOVIG [Suspect]
     Indication: OFF LABEL USE
  4. ENOXAPARIN SODIUM [Suspect]
     Indication: ANTIINFLAMMATORY THERAPY
     Route: 065
  5. PROGESTERONE [Suspect]
     Indication: INFERTILITY
     Route: 065
  6. KIOVIG [Suspect]
     Indication: INFERTILITY
     Route: 042
  7. ASPIRIN [Suspect]
     Indication: INFERTILITY
     Route: 065

REACTIONS (3)
  - MATERNAL EXPOSURE DURING PREGNANCY [None]
  - DIGEORGE'S SYNDROME [None]
  - ABORTION INDUCED [None]
